FAERS Safety Report 18209184 (Version 24)
Quarter: 2025Q3

REPORT INFORMATION
  Report Type: Report from Study
  Country: US (occurrence: US)
  Receive Date: 20200828
  Receipt Date: 20250706
  Transmission Date: 20251020
  Serious: Yes (Hospitalization)
  Sender: TAKEDA
  Company Number: US-SHIRE-US202009777

PATIENT
  Sex: Female
  Weight: 86 kg

DRUGS (33)
  1. HUMAN C1-ESTERASE INHIBITOR [Suspect]
     Active Substance: HUMAN C1-ESTERASE INHIBITOR
     Indication: Immune system disorder
  2. HUMAN C1-ESTERASE INHIBITOR [Suspect]
     Active Substance: HUMAN C1-ESTERASE INHIBITOR
     Indication: Idiopathic urticaria
  3. HUMAN C1-ESTERASE INHIBITOR [Suspect]
     Active Substance: HUMAN C1-ESTERASE INHIBITOR
     Indication: Immunodeficiency common variable
  4. HUMAN C1-ESTERASE INHIBITOR [Suspect]
     Active Substance: HUMAN C1-ESTERASE INHIBITOR
  5. HUMAN C1-ESTERASE INHIBITOR [Suspect]
     Active Substance: HUMAN C1-ESTERASE INHIBITOR
  6. HUMAN C1-ESTERASE INHIBITOR [Suspect]
     Active Substance: HUMAN C1-ESTERASE INHIBITOR
     Dosage: 2000 INTERNATIONAL UNIT, QOD
  7. KALBITOR [Suspect]
     Active Substance: ECALLANTIDE
     Indication: Immune system disorder
  8. KALBITOR [Suspect]
     Active Substance: ECALLANTIDE
     Indication: Idiopathic urticaria
  9. KALBITOR [Suspect]
     Active Substance: ECALLANTIDE
     Indication: Immunodeficiency common variable
  10. KALBITOR [Suspect]
     Active Substance: ECALLANTIDE
  11. FIRAZYR [Suspect]
     Active Substance: ICATIBANT ACETATE
     Indication: Immune system disorder
  12. FIRAZYR [Suspect]
     Active Substance: ICATIBANT ACETATE
     Indication: Idiopathic urticaria
  13. FIRAZYR [Suspect]
     Active Substance: ICATIBANT ACETATE
     Indication: Immunodeficiency common variable
  14. TAKHZYRO [Suspect]
     Active Substance: LANADELUMAB-FLYO
     Indication: Immune system disorder
     Dosage: 300 MILLIGRAM, Q2WEEKS
  15. TAKHZYRO [Suspect]
     Active Substance: LANADELUMAB-FLYO
  16. TAKHZYRO [Suspect]
     Active Substance: LANADELUMAB-FLYO
  17. CHLORHEXIDINE [Suspect]
     Active Substance: CHLORHEXIDINE
     Indication: Product used for unknown indication
  18. EPINEPHRINE [Concomitant]
     Active Substance: EPINEPHRINE
  19. OXYCODONE HYDROCHLORIDE [Concomitant]
     Active Substance: OXYCODONE HYDROCHLORIDE
  20. SODIUM CHLORIDE [Concomitant]
     Active Substance: SODIUM CHLORIDE
  21. HEPARIN [Concomitant]
     Active Substance: HEPARIN SODIUM
  22. PROTONIX [Concomitant]
     Active Substance: PANTOPRAZOLE SODIUM
  23. SOMA [Concomitant]
     Active Substance: CARISOPRODOL
  24. LASIX [Concomitant]
     Active Substance: FUROSEMIDE
  25. BENADRYL [Concomitant]
     Active Substance: DIPHENHYDRAMINE HYDROCHLORIDE
  26. QUETIAPINE FUMARATE [Concomitant]
     Active Substance: QUETIAPINE FUMARATE
  27. METFORMIN HYDROCHLORIDE [Concomitant]
     Active Substance: METFORMIN HYDROCHLORIDE
  28. SPIRONOLACTONE [Concomitant]
     Active Substance: SPIRONOLACTONE
  29. SODIUM CHLORIDE [Concomitant]
     Active Substance: SODIUM CHLORIDE
  30. LEXAPRO [Concomitant]
     Active Substance: ESCITALOPRAM OXALATE
  31. PLAVIX [Concomitant]
     Active Substance: CLOPIDOGREL BISULFATE
  32. DIPHENHYDRAMINE [Concomitant]
     Active Substance: DIPHENHYDRAMINE
  33. STERILE WATER [Concomitant]
     Active Substance: WATER

REACTIONS (12)
  - Hereditary angioedema [Recovered/Resolved]
  - Illness [Recovered/Resolved]
  - Complication associated with device [Recovered/Resolved]
  - Weight decreased [Recovered/Resolved]
  - COVID-19 [Recovered/Resolved]
  - Product dose omission issue [Recovered/Resolved]
  - Product distribution issue [Recovered/Resolved]
  - Product use issue [Recovered/Resolved]
  - Nasopharyngitis [Recovered/Resolved]
  - Arthralgia [Recovered/Resolved]
  - Dermatitis contact [Recovered/Resolved]
  - Hypersensitivity [Recovered/Resolved]
